FAERS Safety Report 19478189 (Version 5)
Quarter: 2022Q3

REPORT INFORMATION
  Report Type: Spontaneous
  Country: ES (occurrence: ES)
  Receive Date: 20210630
  Receipt Date: 20220720
  Transmission Date: 20221027
  Serious: Yes (Other)
  Sender: FDA-Public Use
  Company Number: None

PATIENT
  Age: 50 Year
  Sex: Female

DRUGS (4)
  1. VANCOMYCIN HYDROCHLORIDE [Suspect]
     Active Substance: VANCOMYCIN HYDROCHLORIDE
     Indication: Infection
     Dosage: 1 G, 2X/DAY
     Route: 042
     Dates: start: 20191207, end: 20191207
  2. RIFAMPIN [Suspect]
     Active Substance: RIFAMPIN
     Indication: Infection
     Dosage: 600 MG, DAILY
     Route: 048
     Dates: start: 20191208, end: 20191223
  3. CLOXACILLIN SODIUM [Suspect]
     Active Substance: CLOXACILLIN SODIUM
     Indication: Product used for unknown indication
     Dosage: UNK
     Dates: start: 20191208, end: 20191217
  4. AMOXICILLIN [Concomitant]
     Active Substance: AMOXICILLIN
     Indication: Infection
     Dosage: 1 DF, 3X/DAY (1-1-1)
     Route: 048
     Dates: start: 20191022, end: 20191030

REACTIONS (2)
  - Hepatic cytolysis [Recovered/Resolved]
  - Hepatocellular injury [Recovered/Resolved]

NARRATIVE: CASE EVENT DATE: 20191216
